FAERS Safety Report 26082731 (Version 1)
Quarter: 2025Q4

REPORT INFORMATION
  Report Type: Spontaneous
  Country: EU (occurrence: EU)
  Receive Date: 20251124
  Receipt Date: 20251124
  Transmission Date: 20260117
  Serious: Yes (Hospitalization)
  Sender: MYLAN
  Company Number: None

PATIENT
  Age: 54 Year
  Sex: Male
  Weight: 79 kg

DRUGS (12)
  1. VENLAFAXINE [Suspect]
     Active Substance: VENLAFAXINE HYDROCHLORIDE
     Indication: Poisoning deliberate
     Dosage: UNK (NP)
     Dates: start: 20251015, end: 20251015
  2. VENLAFAXINE [Suspect]
     Active Substance: VENLAFAXINE HYDROCHLORIDE
     Dosage: UNK (NP)
     Route: 048
     Dates: start: 20251015, end: 20251015
  3. VENLAFAXINE [Suspect]
     Active Substance: VENLAFAXINE HYDROCHLORIDE
     Dosage: UNK (NP)
     Route: 048
     Dates: start: 20251015, end: 20251015
  4. VENLAFAXINE [Suspect]
     Active Substance: VENLAFAXINE HYDROCHLORIDE
     Dosage: UNK (NP)
     Dates: start: 20251015, end: 20251015
  5. QUETIAPINE [Suspect]
     Active Substance: QUETIAPINE
     Indication: Poisoning deliberate
     Dosage: 1 DOSAGE FORM 1 TOTAL (LP 300 MG)
     Dates: start: 20251015, end: 20251015
  6. QUETIAPINE [Suspect]
     Active Substance: QUETIAPINE
     Dosage: 1 DOSAGE FORM 1 TOTAL (LP 300 MG)
     Route: 048
     Dates: start: 20251015, end: 20251015
  7. QUETIAPINE [Suspect]
     Active Substance: QUETIAPINE
     Dosage: 1 DOSAGE FORM 1 TOTAL (LP 300 MG)
     Route: 048
     Dates: start: 20251015, end: 20251015
  8. QUETIAPINE [Suspect]
     Active Substance: QUETIAPINE
     Dosage: 1 DOSAGE FORM 1 TOTAL (LP 300 MG)
     Dates: start: 20251015, end: 20251015
  9. OXAZEPAM [Suspect]
     Active Substance: OXAZEPAM
     Indication: Poisoning deliberate
     Dosage: 10 DOSAGE FORM 1 TOTAL (10 BOXES)
     Dates: start: 20251015, end: 20251015
  10. OXAZEPAM [Suspect]
     Active Substance: OXAZEPAM
     Dosage: 10 DOSAGE FORM 1 TOTAL (10 BOXES)
     Route: 048
     Dates: start: 20251015, end: 20251015
  11. OXAZEPAM [Suspect]
     Active Substance: OXAZEPAM
     Dosage: 10 DOSAGE FORM 1 TOTAL (10 BOXES)
     Route: 048
     Dates: start: 20251015, end: 20251015
  12. OXAZEPAM [Suspect]
     Active Substance: OXAZEPAM
     Dosage: 10 DOSAGE FORM 1 TOTAL (10 BOXES)
     Dates: start: 20251015, end: 20251015

REACTIONS (4)
  - Poisoning deliberate [Recovered/Resolved]
  - Coma [Recovered/Resolved]
  - Respiratory distress [Recovered/Resolved]
  - Mydriasis [Recovered/Resolved]

NARRATIVE: CASE EVENT DATE: 20251015
